FAERS Safety Report 5284096-3 (Version None)
Quarter: 2007Q1

REPORT INFORMATION
  Report Type: 
  Country: None (occurrence: None)
  Receive Date: 20070327
  Receipt Date: 20070320
  Transmission Date: 20070707
  Serious: Yes (Death, Life-Threatening)
  Sender: FDA-Public Use
  Company Number: 163-21880-06081457

PATIENT
  Age: 68 Year
  Sex: Male

DRUGS (5)
  1. REVLIMID [Suspect]
     Indication: MYELODYSPLASTIC SYNDROME
     Dosage: 10 MG, DAILY X 28 DAYS, ORAL
     Route: 048
     Dates: start: 20060801, end: 20060801
  2. NEUPOGEN [Concomitant]
  3. PROCRIT [Concomitant]
  4. BLOOD TRANSFUSION [Concomitant]
  5. ANTIBIOTICS (ANTIBIOTICS) [Concomitant]

REACTIONS (6)
  - ASTHENIA [None]
  - BACTERIAL SEPSIS [None]
  - DISEASE PROGRESSION [None]
  - MYELODYSPLASTIC SYNDROME [None]
  - PANCYTOPENIA [None]
  - PSEUDOMONAS INFECTION [None]
